FAERS Safety Report 11070979 (Version 3)
Quarter: 2016Q2

REPORT INFORMATION
  Report Type: Spontaneous
  Country: CA (occurrence: CA)
  Receive Date: 20150428
  Receipt Date: 20160519
  Transmission Date: 20160815
  Serious: Yes (Hospitalization)
  Sender: FDA-Public Use
  Company Number: CA-AMGEN-CANSP2015039900

PATIENT
  Age: 55 Year
  Sex: Female

DRUGS (4)
  1. PLAQUENIL [Concomitant]
     Active Substance: HYDROXYCHLOROQUINE SULFATE
     Indication: RHEUMATOID ARTHRITIS
     Dosage: UNK
  2. ENBREL [Suspect]
     Active Substance: ETANERCEPT
     Indication: RHEUMATOID ARTHRITIS
     Dosage: UNK
     Route: 065
     Dates: start: 2014, end: 2014
  3. METHOTREXATE (METHOTREXATE SODIUM) [Suspect]
     Active Substance: METHOTREXATE SODIUM
     Indication: PRODUCT USED FOR UNKNOWN INDICATION
     Dosage: UNK
     Route: 065
     Dates: start: 2014
  4. PREDNISONE. [Suspect]
     Active Substance: PREDNISONE
     Indication: PRODUCT USED FOR UNKNOWN INDICATION
     Dosage: UNK
     Route: 065

REACTIONS (16)
  - Back pain [Recovered/Resolved]
  - Drug ineffective [Unknown]
  - Angiopathy [Unknown]
  - Fatigue [Unknown]
  - Skin discolouration [Unknown]
  - Muscle disorder [Unknown]
  - Hypersensitivity [Unknown]
  - Skin disorder [Unknown]
  - Weight increased [Unknown]
  - Lung disorder [Unknown]
  - Injection site reaction [Unknown]
  - Pharyngitis streptococcal [Recovered/Resolved]
  - Cough [Unknown]
  - Musculoskeletal disorder [Unknown]
  - Viral pharyngitis [Unknown]
  - Psychomotor hyperactivity [Unknown]

NARRATIVE: CASE EVENT DATE: 2014
